FAERS Safety Report 4407681-7 (Version None)
Quarter: 2004Q3

REPORT INFORMATION
  Report Type: 
  Country: None (occurrence: None)
  Receive Date: 20040721
  Receipt Date: 20040707
  Transmission Date: 20050211
  Serious: Yes (Other)
  Sender: FDA-Public Use
  Company Number: DE_040413429

PATIENT
  Age: 48 Year
  Sex: Male

DRUGS (4)
  1. ZYPREXA [Suspect]
     Dosage: 15 MG DAY
     Route: 048
     Dates: start: 20040401, end: 20040420
  2. DEPAKENE [Concomitant]
  3. OXAZEPAM [Concomitant]
  4. DIAZEPAM [Concomitant]

REACTIONS (2)
  - BLOOD AMYLASE INCREASED [None]
  - LIPASE INCREASED [None]
